FAERS Safety Report 6681688-1 (Version None)
Quarter: 2010Q2

REPORT INFORMATION
  Report Type: 
  Country: None (occurrence: None)
  Receive Date: 20100414
  Receipt Date: 20100402
  Transmission Date: 20101027
  Serious: Yes (Hospitalization)
  Sender: FDA-Public Use
  Company Number: US-WYE-H14428710

PATIENT
  Sex: Male
  Weight: 105.33 kg

DRUGS (10)
  1. PRISTIQ [Suspect]
     Indication: DEPRESSION
     Route: 048
     Dates: start: 20090726
  2. ACETAMINOPHEN [Concomitant]
     Indication: HEADACHE
     Dosage: UNKNOWN DOSE AS NEEDED
  3. LORATADINE [Concomitant]
     Indication: HYPERSENSITIVITY
     Dosage: UNKNOWN DOSE AS NEEDED
  4. PSEUDOEPHEDRINE HYDROCHLORIDE [Concomitant]
  5. DIPHENHYDRAMINE HYDROCHLORIDE [Concomitant]
     Indication: HYPERSENSITIVITY
     Dosage: UNKNOWN DOSE AS NEEDED
  6. ZOLPIDEM [Concomitant]
  7. LORAZEPAM [Concomitant]
  8. MULTIPLE VITAMINS [Concomitant]
  9. IBUPROFEN [Concomitant]
     Indication: ARTHRALGIA
     Dosage: UNKNOWN DOSE AS NEEDED
  10. CETIRIZINE HCL [Concomitant]
     Indication: HYPERSENSITIVITY
     Dosage: UNKNOWN DOSE AS NEEDED

REACTIONS (4)
  - BLOOD PRESSURE INCREASED [None]
  - CARDIAC DISORDER [None]
  - ERECTION INCREASED [None]
  - SYNCOPE [None]
